FAERS Safety Report 22369279 (Version 1)
Quarter: 2023Q2

REPORT INFORMATION
  Report Type: Spontaneous
  Country: TR (occurrence: TR)
  Receive Date: 20230526
  Receipt Date: 20230526
  Transmission Date: 20230722
  Serious: Yes (Hospitalization)
  Sender: FDA-Public Use
  Company Number: TR-STRIDES ARCOLAB LIMITED-2023SP007502

PATIENT
  Age: 36 Year
  Sex: Male

DRUGS (12)
  1. PROPRANOLOL [Suspect]
     Active Substance: PROPRANOLOL HYDROCHLORIDE
     Indication: Product used for unknown indication
     Dosage: 40 MILLIGRAM PER DAY
     Route: 065
  2. HALOPERIDOL [Suspect]
     Active Substance: HALOPERIDOL
     Indication: Obsessive-compulsive disorder
     Dosage: UNK
     Route: 065
  3. HALOPERIDOL [Suspect]
     Active Substance: HALOPERIDOL
     Dosage: UNK; HE WAS DISCHARGED ON CLOZAPINE, HALOPERIDOL
     Route: 065
  4. BIPERIDEN [Suspect]
     Active Substance: BIPERIDEN
     Indication: Obsessive-compulsive disorder
     Dosage: UNK
     Route: 065
  5. BIPERIDEN [Suspect]
     Active Substance: BIPERIDEN
     Dosage: UNK; HE WAS DISCHARGED ON BIPERIDEN
     Route: 065
  6. ESCITALOPRAM [Suspect]
     Active Substance: ESCITALOPRAM OXALATE
     Indication: Obsessive-compulsive disorder
     Dosage: UNK
     Route: 065
  7. CLOZAPINE [Concomitant]
     Active Substance: CLOZAPINE
     Indication: Schizoaffective disorder
     Dosage: 600 MILLIGRAM PER DAY
     Route: 065
  8. CLOZAPINE [Concomitant]
     Active Substance: CLOZAPINE
     Dosage: 300 MILLIGRAM PER DAY
     Route: 065
  9. QUETIAPINE [Concomitant]
     Active Substance: QUETIAPINE
     Indication: Schizoaffective disorder
     Dosage: 700 MILLIGRAM PER DAY
     Route: 065
  10. RISPERIDONE [Concomitant]
     Active Substance: RISPERIDONE
     Indication: Schizoaffective disorder
     Dosage: 6 MILLIGRAM PER DAY
     Route: 065
  11. VALPROATE SODIUM [Concomitant]
     Active Substance: VALPROATE SODIUM
     Indication: Schizoaffective disorder
     Dosage: 1000 MILLIGRAM PER DAY
     Route: 065
  12. FLUPENTIXOL [Concomitant]
     Active Substance: FLUPENTIXOL
     Indication: Schizoaffective disorder
     Dosage: 1000 MILLIGRAM PER DAY
     Route: 065

REACTIONS (2)
  - Orthostatic hypotension [Recovered/Resolved]
  - Drug ineffective for unapproved indication [Unknown]
